FAERS Safety Report 13400094 (Version 1)
Quarter: 2017Q2

REPORT INFORMATION
  Report Type: Spontaneous
  Country: US (occurrence: US)
  Receive Date: 20170404
  Receipt Date: 20170404
  Transmission Date: 20170830
  Serious: Yes (Disabling, Other)
  Sender: FDA-Public Use
  Company Number: None

PATIENT
  Age: 53 Year
  Sex: Female
  Weight: 78.09 kg

DRUGS (1)
  1. GENERIC FOR LIPITOR [Suspect]
     Active Substance: ATORVASTATIN CALCIUM
     Indication: BLOOD CHOLESTEROL INCREASED
     Dosage: 1 PILL ONCE DAILY ORALLY
     Route: 048
     Dates: start: 20161228, end: 20170220

REACTIONS (3)
  - Fatigue [None]
  - Paramnesia [None]
  - Musculoskeletal stiffness [None]

NARRATIVE: CASE EVENT DATE: 20170219
